FAERS Safety Report 22139852 (Version 4)
Quarter: 2023Q4

REPORT INFORMATION
  Report Type: Spontaneous
  Country: BR (occurrence: BR)
  Receive Date: 20230327
  Receipt Date: 20231116
  Transmission Date: 20240110
  Serious: Yes (Other)
  Sender: FDA-Public Use
  Company Number: BR-NOVOPROD-1042020

PATIENT
  Age: 64 Year
  Sex: Female
  Weight: 65 kg

DRUGS (8)
  1. NOVORAPID [Suspect]
     Active Substance: INSULIN ASPART
     Dosage: 10 UNITS
  2. NOVORAPID [Suspect]
     Active Substance: INSULIN ASPART
     Dosage: 12U, 14U AND 16U
  3. NOVORAPID [Suspect]
     Active Substance: INSULIN ASPART
     Indication: Diabetes mellitus
     Dosage: 6 IU, BID (INCREASE THE DOSE BY 2 UNITS IF GLYCEMIA IS HIGH)
     Dates: start: 2013
  4. NOVORAPID [Suspect]
     Active Substance: INSULIN ASPART
     Dosage: 12 UNITS
     Dates: start: 20230314
  5. NOVORAPID [Suspect]
     Active Substance: INSULIN ASPART
     Dosage: 14 AND 16 UNITS
     Dates: start: 20230315
  6. HYDROCHLOROTHIAZIDE [Concomitant]
     Active Substance: HYDROCHLOROTHIAZIDE
     Indication: Hypertension
     Dosage: UNK
  7. BASAGLAR [Concomitant]
     Active Substance: INSULIN GLARGINE
     Indication: Diabetes mellitus
     Dosage: 22 IU, QD
  8. CORUS [SACCHARATED IRON OXIDE] [Concomitant]
     Indication: Hypertension
     Dosage: 50 MG

REACTIONS (10)
  - Hyperglycaemia [Not Recovered/Not Resolved]
  - Diabetes mellitus inadequate control [Not Recovered/Not Resolved]
  - Drug ineffective [Unknown]
  - Hypoglycaemia [Recovered/Resolved]
  - Device issue [Unknown]
  - Hypoglycaemia [Recovered/Resolved]
  - Hypoglycaemia [Recovered/Resolved]
  - Hypoglycaemia [Not Recovered/Not Resolved]
  - Product storage error [Unknown]
  - Product storage error [Unknown]

NARRATIVE: CASE EVENT DATE: 20230313
